FAERS Safety Report 9836233 (Version 2)
Quarter: 2014Q1

REPORT INFORMATION
  Report Type: Report from Study
  Country: AU (occurrence: AU)
  Receive Date: 20140123
  Receipt Date: 20140123
  Transmission Date: 20141002
  Serious: Yes (Other)
  Sender: FDA-Public Use
  Company Number: AU-ROCHE-1324335

PATIENT
  Age: 48 Year
  Sex: Female

DRUGS (2)
  1. ACTEMRA [Suspect]
     Indication: RHEUMATOID ARTHRITIS
     Route: 042
     Dates: start: 20130306
  2. METHOTREXATE [Concomitant]
     Dosage: CEASED 6 WEEKS AGO, AROUND 11-NOV-2013.
     Route: 065

REACTIONS (1)
  - Rheumatoid arthritis [Recovered/Resolved]
